FAERS Safety Report 4860660-8 (Version None)
Quarter: 2005Q4

REPORT INFORMATION
  Report Type: 
  Country: None (occurrence: None)
  Receive Date: 20051216
  Receipt Date: 20051206
  Transmission Date: 20060501
  Serious: Yes (Life-Threatening, Hospitalization)
  Sender: FDA-Public Use
  Company Number: 220130

PATIENT
  Age: 63 Year
  Sex: Female
  Weight: 163 kg

DRUGS (3)
  1. AVASTIN [Suspect]
     Indication: DRUG USE FOR UNKNOWN INDICATION
     Dosage: 375 MG, Q3W, INTRAVENOUS
     Route: 042
     Dates: start: 20051123, end: 20051123
  2. PACLITAXEL [Concomitant]
  3. BETA BLOCKERS NOS (BETA BLOCKERS NOS) [Concomitant]

REACTIONS (4)
  - BRADYCARDIA [None]
  - CONVULSION [None]
  - LOSS OF CONSCIOUSNESS [None]
  - RESPIRATION ABNORMAL [None]
